FAERS Safety Report 7021538-7 (Version None)
Quarter: 2010Q3

REPORT INFORMATION
  Report Type: 
  Country: None (occurrence: None)
  Receive Date: 20100928
  Receipt Date: 20100913
  Transmission Date: 20110219
  Serious: Yes (Other)
  Sender: FDA-Public Use
  Company Number: 2010-2424

PATIENT
  Age: 63 Year
  Sex: Female
  Weight: 63 kg

DRUGS (8)
  1. DYSPORT [Suspect]
     Indication: PRODUCT USED FOR UNKNOWN INDICATION
     Dosage: 60 UNITS (60 UNITS, SINGLE CYCLE), INTRADERMAL
     Route: 023
     Dates: start: 20100607, end: 20100607
  2. DYSPORT [Suspect]
     Indication: SKIN WRINKLING
     Dosage: 60 UNITS (60 UNITS, SINGLE CYCLE), INTRADERMAL
     Route: 023
     Dates: start: 20100607, end: 20100607
  3. RESTYLANE-L (HYALURONIC ACID) [Concomitant]
  4. PERCOCET [Concomitant]
  5. THYROID REPLACEMENT (THYROID HORMONES) [Concomitant]
  6. IMITREX [Concomitant]
  7. BUSPAR [Concomitant]
  8. AMBIEN CR [Concomitant]

REACTIONS (8)
  - CEREBELLAR ATROPHY [None]
  - CEREBRAL INFARCTION [None]
  - DEAFNESS UNILATERAL [None]
  - DYSARTHRIA [None]
  - FACIAL PARESIS [None]
  - GAIT DISTURBANCE [None]
  - INCORRECT ROUTE OF DRUG ADMINISTRATION [None]
  - OFF LABEL USE [None]
